FAERS Safety Report 11384547 (Version 1)
Quarter: 2015Q3

REPORT INFORMATION
  Report Type: Spontaneous
  Country: US (occurrence: US)
  Receive Date: 20150811
  Receipt Date: 20150811
  Transmission Date: 20151125
  Serious: No
  Sender: FDA-Public Use
  Company Number: US-ELI_LILLY_AND_COMPANY-US201103000173

PATIENT
  Sex: Male
  Weight: 63.49 kg

DRUGS (4)
  1. VITAMINS [Concomitant]
     Active Substance: VITAMINS
  2. ASA [Concomitant]
     Active Substance: ASPIRIN
  3. CIALIS [Suspect]
     Active Substance: TADALAFIL
     Indication: ERECTILE DYSFUNCTION
     Dosage: 20 MG, AS NEEDED
  4. CELEBREX [Concomitant]
     Active Substance: CELECOXIB
     Indication: ARTHRITIS
     Dosage: 1 DF, UNK

REACTIONS (4)
  - Arthritis [Unknown]
  - Fatigue [Unknown]
  - Drug ineffective [Unknown]
  - Intentional product use issue [Unknown]
